FAERS Safety Report 5154172-4 (Version None)
Quarter: 2006Q4

REPORT INFORMATION
  Report Type: 
  Country: None (occurrence: None)
  Receive Date: 20061116
  Receipt Date: 20061116
  Transmission Date: 20070319
  Serious: Yes (Other)
  Sender: FDA-Public Use
  Company Number: None

PATIENT
  Age: 75 Year
  Sex: Male

DRUGS (10)
  1. AMIODARONE HCL [Suspect]
     Indication: ARRHYTHMIA
     Dosage: 300 MG OD PO
     Route: 048
  2. DECADRON [Concomitant]
  3. NEXIUM [Concomitant]
  4. FOSAMAX [Concomitant]
  5. LASIX [Concomitant]
  6. IMDUR [Concomitant]
  7. LIPITOR [Concomitant]
  8. NORVASC [Concomitant]
  9. THALIDOMIDE [Concomitant]
  10. COUMADIN [Concomitant]

REACTIONS (1)
  - HYPERTHYROIDISM [None]
